FAERS Safety Report 20328788 (Version 1)
Quarter: 2022Q1

REPORT INFORMATION
  Report Type: Spontaneous
  Country: US (occurrence: US)
  Receive Date: 20220112
  Receipt Date: 20220112
  Transmission Date: 20220423
  Serious: No
  Sender: FDA-Public Use
  Company Number: US-ELI_LILLY_AND_COMPANY-US202112013571

PATIENT
  Age: 73 Year
  Sex: Male

DRUGS (9)
  1. BASAGLAR [Suspect]
     Active Substance: INSULIN GLARGINE
     Indication: Type 2 diabetes mellitus
     Dosage: 18 U, DAILY (BEDTIME)
     Route: 058
  2. BASAGLAR [Suspect]
     Active Substance: INSULIN GLARGINE
     Indication: Type 2 diabetes mellitus
     Dosage: 18 U, DAILY (BEDTIME)
     Route: 058
  3. BASAGLAR [Suspect]
     Active Substance: INSULIN GLARGINE
     Indication: Type 2 diabetes mellitus
     Dosage: 18 U, DAILY (BEDTIME)
     Route: 058
  4. BASAGLAR [Suspect]
     Active Substance: INSULIN GLARGINE
     Dosage: 18 U, DAILY (BEDTIME)
     Route: 058
  5. BASAGLAR [Suspect]
     Active Substance: INSULIN GLARGINE
     Dosage: 18 U, DAILY (BEDTIME)
     Route: 058
  6. BASAGLAR [Suspect]
     Active Substance: INSULIN GLARGINE
     Dosage: 18 U, DAILY (BEDTIME)
     Route: 058
  7. BASAGLAR [Suspect]
     Active Substance: INSULIN GLARGINE
     Dosage: 18 U, DAILY (BEDTIME)
     Route: 058
  8. ELIQUIS [Concomitant]
     Active Substance: APIXABAN
     Indication: Vascular graft
  9. NOVOLOG [Concomitant]
     Active Substance: INSULIN ASPART
     Indication: Type 2 diabetes mellitus

REACTIONS (2)
  - Blood glucose increased [Recovering/Resolving]
  - Accidental underdose [Recovering/Resolving]

NARRATIVE: CASE EVENT DATE: 20211229
